FAERS Safety Report 16289681 (Version 1)
Quarter: 2019Q2

REPORT INFORMATION
  Report Type: Spontaneous
  Country: DE (occurrence: DE)
  Receive Date: 20190509
  Receipt Date: 20190509
  Transmission Date: 20190711
  Serious: Yes (Other)
  Sender: FDA-Public Use
  Company Number: DE-TEVA-2019-DE-1047287

PATIENT
  Sex: Male

DRUGS (1)
  1. VALSARTAN 160 MG [Suspect]
     Active Substance: VALSARTAN
     Route: 048
     Dates: start: 2016

REACTIONS (1)
  - Skin cancer [Unknown]

NARRATIVE: CASE EVENT DATE: 2018
